FAERS Safety Report 20151337 (Version 1)
Quarter: 2021Q4

REPORT INFORMATION
  Report Type: Spontaneous
  Country: PL (occurrence: PL)
  Receive Date: 20211206
  Receipt Date: 20211206
  Transmission Date: 20220303
  Serious: Yes (Other)
  Sender: FDA-Public Use
  Company Number: PL-NOVARTISPH-NVSC2021PL269870

PATIENT
  Age: 50 Year
  Sex: Male

DRUGS (4)
  1. RYDAPT [Suspect]
     Active Substance: MIDOSTAURIN
     Indication: Acute myeloid leukaemia
     Dosage: 100 MG, QD (2X50MG/DAILY (DAYS 8-21)
     Route: 048
  2. CYTARABINE [Suspect]
     Active Substance: CYTARABINE
     Indication: Acute myeloid leukaemia
     Dosage: UNK (200MG/M2) (DAYS 1-7)
     Route: 065
  3. DAUNORUBICIN [Suspect]
     Active Substance: DAUNORUBICIN
     Indication: Acute myeloid leukaemia
     Dosage: 5 MG/M2 (1-2)
     Route: 065
  4. CLADRIBINE [Suspect]
     Active Substance: CLADRIBINE
     Indication: Acute myeloid leukaemia
     Dosage: 5 MG/M2 (1-5)
     Route: 065

REACTIONS (9)
  - Anal abscess [Unknown]
  - Agranulocytosis [Unknown]
  - Enteritis [Unknown]
  - Clostridium difficile infection [Unknown]
  - Urinary retention [Unknown]
  - Haemorrhoids [Unknown]
  - Pyrexia [Unknown]
  - Anal inflammation [Unknown]
  - Product use issue [Unknown]
